FAERS Safety Report 6863095-1 (Version None)
Quarter: 2010Q2

REPORT INFORMATION
  Report Type: 
  Country: None (occurrence: None)
  Receive Date: 20100528
  Receipt Date: 20100304
  Transmission Date: 20101027
  Serious: No
  Sender: FDA-Public Use
  Company Number: 008312

PATIENT
  Sex: Female
  Weight: 86.1 kg

DRUGS (7)
  1. LACOSAMIDE [Suspect]
     Indication: CONVULSION
     Dosage: (50 MG BID ORAL), (100 MG BID ORAL), (200 MG BID ORAL)
     Route: 048
     Dates: start: 20100215, end: 20100224
  2. LACOSAMIDE [Suspect]
     Indication: CONVULSION
     Dosage: (50 MG BID ORAL), (100 MG BID ORAL), (200 MG BID ORAL)
     Route: 048
     Dates: start: 20100224, end: 20100303
  3. LACOSAMIDE [Suspect]
     Indication: CONVULSION
     Dosage: (50 MG BID ORAL), (100 MG BID ORAL), (200 MG BID ORAL)
     Route: 048
     Dates: start: 20100303
  4. KEPPRA [Suspect]
     Indication: CONVULSION
     Dosage: (3000 MG, 1000 MG IN MORNING AND 2000 MG IN EVENING ORAL)
     Route: 048
  5. LAMICTAL [Concomitant]
  6. ZONISAMIDE [Concomitant]
  7. TRILEPTAL [Concomitant]

REACTIONS (5)
  - AGGRESSION [None]
  - CONVULSION [None]
  - COORDINATION ABNORMAL [None]
  - DIZZINESS [None]
  - HEADACHE [None]
